FAERS Safety Report 8480941-9 (Version None)
Quarter: 2012Q3

REPORT INFORMATION
  Report Type: 
  Country: None (occurrence: None)
  Receive Date: 20120702
  Receipt Date: 20120621
  Transmission Date: 20120928
  Serious: Yes (Other)
  Sender: FDA-Public Use
  Company Number: CA-JNJFOC-20120610986

PATIENT
  Sex: Male
  Weight: 65 kg

DRUGS (5)
  1. REMICADE [Suspect]
     Indication: CROHN'S DISEASE
     Route: 042
     Dates: start: 20120621
  2. REMICADE [Suspect]
     Dosage: 0, 2, 6 WEEKS THEN EVERY 8 WEEKS.
     Route: 042
     Dates: start: 20120601
  3. PREDNISONE TAB [Concomitant]
     Route: 065
  4. IMURAN [Concomitant]
     Route: 065
  5. MESALAMINE [Concomitant]
     Route: 065

REACTIONS (1)
  - LATENT TUBERCULOSIS [None]
